FAERS Safety Report 6553400-8 (Version None)
Quarter: 2010Q1

REPORT INFORMATION
  Report Type: 
  Country: None (occurrence: None)
  Receive Date: 20100127
  Receipt Date: 20091120
  Transmission Date: 20100710
  Serious: Yes (Hospitalization)
  Sender: FDA-Public Use
  Company Number: A0810581A

PATIENT
  Age: 59 Year
  Sex: Female

DRUGS (7)
  1. IMITREX [Suspect]
     Indication: MIGRAINE
     Dosage: 6MG AS REQUIRED
     Route: 058
  2. IMITREX TABLETS [Concomitant]
  3. TARCEVA [Concomitant]
  4. ALLEGRA [Concomitant]
  5. BENICAR [Concomitant]
  6. ROPINIROLE [Concomitant]
  7. ADVIL COLD AND SINUS [Concomitant]

REACTIONS (1)
  - ANGINA PECTORIS [None]
